FAERS Safety Report 16701060 (Version 5)
Quarter: 2024Q4

REPORT INFORMATION
  Report Type: Report from Study
  Country: DE (occurrence: DE)
  Receive Date: 20190814
  Receipt Date: 20241102
  Transmission Date: 20250115
  Serious: Yes (Death, Other)
  Sender: AUROBINDO
  Company Number: DE-LAV-2019-00101

PATIENT
  Age: 66 Year
  Sex: Male
  Weight: 64 kg

DRUGS (5)
  1. AMLODIPINE [Interacting]
     Active Substance: AMLODIPINE BESYLATE
     Indication: Product used for unknown indication
     Dosage: UNK
     Route: 065
  2. BISOPROLOL [Interacting]
     Active Substance: BISOPROLOL\BISOPROLOL FUMARATE
     Indication: Product used for unknown indication
     Dosage: UNK
     Route: 065
  3. CITALOPRAM [Interacting]
     Active Substance: CITALOPRAM
     Indication: Product used for unknown indication
     Dosage: UNK
     Route: 065
  4. FENTANYL TRANSDERMAL SYSTEM [Interacting]
     Active Substance: FENTANYL
     Indication: Back pain
     Dosage: 50 MICROGRAM/HOUR,5 DAYS (TOTAL:150MICROGRAM/HOUR), 3 PATCHES
     Route: 062
  5. TRIMIPRAMINE [Interacting]
     Active Substance: TRIMIPRAMINE
     Indication: Product used for unknown indication
     Dosage: UNK
     Route: 065

REACTIONS (7)
  - Toxicity to various agents [Fatal]
  - Prescription drug used without a prescription [Fatal]
  - Intentional product misuse [Fatal]
  - Drug interaction [Fatal]
  - Pulmonary oedema [Unknown]
  - Brain oedema [Unknown]
  - Urinary retention [Unknown]
